FAERS Safety Report 10703259 (Version 1)
Quarter: 2015Q1

REPORT INFORMATION
  Report Type: Spontaneous
  Country: GB (occurrence: GB)
  Receive Date: 20150112
  Receipt Date: 20150112
  Transmission Date: 20150721
  Serious: Yes (Other)
  Sender: FDA-Public Use
  Company Number: GB-AUROBINDO-AUR-APL-2015-00042

PATIENT
  Age: 17 Year
  Sex: Female

DRUGS (12)
  1. OLANZAPINE 10MG [Suspect]
     Active Substance: OLANZAPINE
     Indication: LEARNING DISABILITY
     Dosage: 5 MG, ONCE A DAY
     Route: 048
     Dates: start: 20141215
  2. CIRCADIN [Concomitant]
     Active Substance: MELATONIN
     Indication: PRODUCT USED FOR UNKNOWN INDICATION
     Dosage: UNK
     Route: 065
  3. OLANZAPINE 10MG [Suspect]
     Active Substance: OLANZAPINE
     Indication: POST-TRAUMATIC STRESS DISORDER
     Dosage: 2.5 MG, ONCE A DAY
     Route: 048
     Dates: start: 20141214
  4. ZYPREXA [Suspect]
     Active Substance: OLANZAPINE
     Indication: LEARNING DISABILITY
     Dosage: UNK
     Route: 030
     Dates: start: 20141215
  5. ZYPREXA [Suspect]
     Active Substance: OLANZAPINE
     Indication: ADJUSTMENT DISORDER
  6. OLANZAPINE 10MG [Suspect]
     Active Substance: OLANZAPINE
     Dosage: 2.5 MG, 3 TIMES A DAY
     Route: 048
     Dates: start: 20141218
  7. ARIPIPRAZOLE. [Concomitant]
     Active Substance: ARIPIPRAZOLE
     Indication: PRODUCT USED FOR UNKNOWN INDICATION
     Dosage: UNK
     Route: 065
  8. OLANZAPINE 10MG [Suspect]
     Active Substance: OLANZAPINE
     Dosage: 7.5 MG, ONCE A DAY
     Route: 048
     Dates: start: 20141216
  9. SERTRALINE [Concomitant]
     Active Substance: SERTRALINE HYDROCHLORIDE
     Indication: PRODUCT USED FOR UNKNOWN INDICATION
     Dosage: UNK
     Route: 065
  10. DIAZEPAM. [Concomitant]
     Active Substance: DIAZEPAM
     Indication: PRODUCT USED FOR UNKNOWN INDICATION
     Dosage: 2 MG, 3 TIMES A DAY
     Route: 065
  11. ZYPREXA [Suspect]
     Active Substance: OLANZAPINE
     Indication: POST-TRAUMATIC STRESS DISORDER
  12. OLANZAPINE 10MG [Suspect]
     Active Substance: OLANZAPINE
     Indication: ADJUSTMENT DISORDER
     Dosage: 10 MG, ONCE A DAY
     Route: 048
     Dates: end: 20141203

REACTIONS (4)
  - Electrocardiogram QT prolonged [Not Recovered/Not Resolved]
  - Cardiac disorder [Not Recovered/Not Resolved]
  - Weight increased [Not Recovered/Not Resolved]
  - Off label use [Not Recovered/Not Resolved]
